FAERS Safety Report 9438612 (Version 3)
Quarter: 2014Q3

REPORT INFORMATION
  Report Type: Spontaneous
  Country: US (occurrence: US)
  Receive Date: 20130802
  Receipt Date: 20140722
  Transmission Date: 20150326
  Serious: Yes (Hospitalization, Disabling, Other)
  Sender: FDA-Public Use
  Company Number: US-009507513-1307USA017123

PATIENT
  Sex: Female
  Weight: 86.17 kg

DRUGS (1)
  1. NUVARING [Suspect]
     Active Substance: ETHINYL ESTRADIOL\ETONOGESTREL
     Indication: CONTRACEPTION
     Dosage: UNK
     Route: 067
     Dates: start: 201003, end: 201110

REACTIONS (17)
  - Depression [Unknown]
  - Anxiety [Unknown]
  - Multiple sclerosis [Not Recovered/Not Resolved]
  - Pulmonary embolism [Recovered/Resolved with Sequelae]
  - Cholecystectomy [Unknown]
  - Anogenital warts [Unknown]
  - Hiccups [Unknown]
  - Cough [Unknown]
  - Coagulopathy [Unknown]
  - Nephrolithiasis [Unknown]
  - Pain [Unknown]
  - Appendicectomy [Unknown]
  - Lung consolidation [Unknown]
  - Pancreatitis acute [Unknown]
  - Optic neuritis [Unknown]
  - Gastrooesophageal reflux disease [Unknown]
  - Vitamin D decreased [Unknown]

NARRATIVE: CASE EVENT DATE: 2010
